FAERS Safety Report 8812208 (Version 2)
Quarter: 2014Q3

REPORT INFORMATION
  Report Type: Report from Study
  Country: US (occurrence: US)
  Receive Date: 20120927
  Receipt Date: 20140901
  Transmission Date: 20150326
  Serious: Yes (Other)
  Sender: FDA-Public Use
  Company Number: US-ROCHE-1126804

PATIENT
  Sex: Female
  Weight: 58 kg

DRUGS (16)
  1. TAXOTERE [Concomitant]
     Active Substance: DOCETAXEL
  2. EPIRUBICIN [Concomitant]
     Active Substance: EPIRUBICIN
  3. AVASTIN [Suspect]
     Active Substance: BEVACIZUMAB
     Route: 065
  4. XELODA [Suspect]
     Active Substance: CAPECITABINE
     Indication: PRODUCT USED FOR UNKNOWN INDICATION
     Route: 065
  5. CARBOPLATIN. [Concomitant]
     Active Substance: CARBOPLATIN
  6. NAVELBINE [Concomitant]
     Active Substance: VINORELBINE TARTRATE
  7. ZOMETA [Concomitant]
     Active Substance: ZOLEDRONIC ACID
  8. AVASTIN [Suspect]
     Active Substance: BEVACIZUMAB
     Route: 065
  9. TAXOL [Concomitant]
     Active Substance: PACLITAXEL
  10. AVASTIN [Suspect]
     Active Substance: BEVACIZUMAB
     Route: 065
  11. HERCEPTIN [Suspect]
     Active Substance: TRASTUZUMAB
     Indication: BREAST CANCER FEMALE
     Route: 065
  12. AVASTIN [Suspect]
     Active Substance: BEVACIZUMAB
     Indication: BREAST CANCER FEMALE
     Route: 065
  13. FEMARA [Concomitant]
     Active Substance: LETROZOLE
  14. AROMASIN [Concomitant]
     Active Substance: EXEMESTANE
  15. ADRIAMYCIN [Concomitant]
     Active Substance: DOXORUBICIN HYDROCHLORIDE
  16. CYTOXAN [Concomitant]
     Active Substance: CYCLOPHOSPHAMIDE

REACTIONS (5)
  - Metastases to skin [Unknown]
  - Wound [Unknown]
  - Cellulitis [Unknown]
  - Skin lesion [Unknown]
  - Disease progression [Unknown]
